FAERS Safety Report 18874512 (Version 1)
Quarter: 2021Q1

REPORT INFORMATION
  Report Type: Spontaneous
  Country: FR (occurrence: FR)
  Receive Date: 20210211
  Receipt Date: 20210211
  Transmission Date: 20210420
  Serious: Yes (Hospitalization)
  Sender: FDA-Public Use
  Company Number: FR-SUN PHARMACEUTICAL INDUSTRIES LTD-2021RR-280319

PATIENT
  Age: 33 Year
  Sex: Female
  Weight: 98 kg

DRUGS (8)
  1. OPTIMIZETTE 75 MICROGRAMMES, COMPRIME PELLICULE [Suspect]
     Active Substance: DESOGESTREL
     Indication: CONTRACEPTION
     Dosage: 1 DOSAGE FORM, DAILY
     Route: 048
  2. TERCIAN 25 MG, COMPRIME PELLICULE SECABLE [Suspect]
     Active Substance: CYAMEMAZINE
     Indication: BIPOLAR DISORDER
     Dosage: 2 DOSAGE FORM, DAILY
     Route: 048
     Dates: start: 20150611
  3. VITAMINE B12 [Concomitant]
     Active Substance: CYANOCOBALAMIN
     Indication: PRODUCT USED FOR UNKNOWN INDICATION
     Dosage: ()
     Route: 048
  4. ACIDE FOLIQUE [Concomitant]
     Active Substance: FOLIC ACID
     Indication: PRODUCT USED FOR UNKNOWN INDICATION
     Dosage: 5 MG, UNK
     Route: 048
  5. TERALITHE [Suspect]
     Active Substance: LITHIUM CARBONATE
     Indication: BIPOLAR DISORDER
     Dosage: 0.5 DOSAGE FORM, DAILY
     Route: 048
     Dates: start: 20150611
  6. SERTRALINE [Suspect]
     Active Substance: SERTRALINE HYDROCHLORIDE
     Indication: DEPRESSION
     Dosage: 2 DOSAGE FORM, DAILY
     Route: 048
  7. NOCTAMIDE 2 MG, COMPRIME SECABLE [Suspect]
     Active Substance: LORMETAZEPAM
     Indication: ANXIETY
     Dosage: 1 DOSAGE FORM, DAILY
     Route: 048
     Dates: start: 20110611
  8. SERESTA 50 MG, COMPRIME SECABLE [Suspect]
     Active Substance: OXAZEPAM
     Indication: ANXIETY
     Dosage: 1 IN THE MORNING AND 0.5 AT NOON
     Route: 048

REACTIONS (2)
  - Deep vein thrombosis [Recovering/Resolving]
  - Pulmonary embolism [Recovering/Resolving]

NARRATIVE: CASE EVENT DATE: 20201214
